FAERS Safety Report 4465079-X (Version None)
Quarter: 2004Q3

REPORT INFORMATION
  Report Type: 
  Country: None (occurrence: None)
  Receive Date: 20040928
  Receipt Date: 20040928
  Transmission Date: 20050211
  Serious: Yes (Hospitalization)
  Sender: FDA-Public Use
  Company Number: None

PATIENT
  Sex: Male

DRUGS (10)
  1. CARVEDILOL [Suspect]
  2. AMIODARONE HCL [Suspect]
  3. CAPTOPRIL [Concomitant]
  4. HEPARIN [Concomitant]
  5. LIDOCAINE [Concomitant]
  6. METOPROLOL [Concomitant]
  7. FUROSEMIDE [Concomitant]
  8. ASPIRIN [Concomitant]
  9. SIMVASTATIN [Concomitant]
  10. ALBUTEROL/IPRATROPIUM [Concomitant]

REACTIONS (1)
  - HYPOTENSION [None]
